FAERS Safety Report 8207535-4 (Version None)
Quarter: 2012Q1

REPORT INFORMATION
  Report Type: 
  Country: None (occurrence: None)
  Receive Date: 20120314
  Receipt Date: 20120305
  Transmission Date: 20120608
  Serious: Yes (Other)
  Sender: FDA-Public Use
  Company Number: ZW-BRISTOL-MYERS SQUIBB COMPANY-16436339

PATIENT
  Age: 28 Year
  Sex: Female
  Weight: 48 kg

DRUGS (5)
  1. STAVUDINE [Suspect]
     Indication: HIV INFECTION
     Route: 048
     Dates: start: 20100318
  2. LOPINAVIR AND RITONAVIR [Suspect]
     Indication: HIV INFECTION
     Dosage: 1DF=400/100MG
     Route: 048
     Dates: start: 20120130
  3. LAMIVUDINE [Suspect]
     Indication: HIV INFECTION
     Dosage: AT BEDTIME
     Route: 048
     Dates: start: 20100318
  4. COMBIVIR [Suspect]
  5. EFAVIRENZ [Suspect]
     Indication: HIV INFECTION
     Dosage: AT BEDTIME LAST DOSE 30JAN12
     Route: 048
     Dates: start: 20100210

REACTIONS (3)
  - PREGNANCY [None]
  - ABORTION SPONTANEOUS [None]
  - NEUTROPENIA [None]
